FAERS Safety Report 6691811-0 (Version None)
Quarter: 2010Q2

REPORT INFORMATION
  Report Type: 
  Country: None (occurrence: None)
  Receive Date: 20100422
  Receipt Date: 20090727
  Transmission Date: 20101027
  Serious: No
  Sender: FDA-Public Use
  Company Number: US-ASTRAZENECA-2009SE06105

PATIENT
  Age: 88 Year
  Sex: Female

DRUGS (2)
  1. TOPROL-XL [Suspect]
     Route: 048
  2. TYLENOL-500 [Suspect]
     Dosage: 2 AT AM AND 2 AT HS

REACTIONS (2)
  - HYPERTENSION [None]
  - MALAISE [None]
